FAERS Safety Report 17988447 (Version 1)
Quarter: 2020Q3

REPORT INFORMATION
  Report Type: Spontaneous
  Country: US (occurrence: US)
  Receive Date: 20200707
  Receipt Date: 20200707
  Transmission Date: 20201103
  Serious: No
  Sender: FDA-Public Use
  Company Number: US-GLENMARK PHARMACEUTICALS-2020GMK048212

PATIENT
  Sex: Female

DRUGS (1)
  1. ESTRADIOL VAGINAL INSERTS USP [Suspect]
     Active Substance: ESTRADIOL
     Indication: PRODUCT USED FOR UNKNOWN INDICATION
     Dosage: 2 DOSAGE FORM, QW (ONE INSERT TWICE PER WEEK)
     Route: 067

REACTIONS (2)
  - Product communication issue [Unknown]
  - Inappropriate schedule of product administration [Unknown]
